FAERS Safety Report 21760284 (Version 6)
Quarter: 2024Q1

REPORT INFORMATION
  Report Type: Report from Study
  Country: CA (occurrence: CA)
  Receive Date: 20221221
  Receipt Date: 20240313
  Transmission Date: 20240409
  Serious: Yes (Other)
  Sender: FDA-Public Use
  Company Number: CA-002147023-PHHY2017CA076870

PATIENT
  Age: 1 Year
  Sex: Male

DRUGS (10)
  1. ILARIS [Suspect]
     Active Substance: CANAKINUMAB
     Indication: Still^s disease
     Dosage: 20 MG, EVERY 4 WEEKS
     Route: 058
     Dates: start: 20170508
  2. ILARIS [Suspect]
     Active Substance: CANAKINUMAB
     Dosage: UNK
     Route: 058
     Dates: start: 20170515
  3. ILARIS [Suspect]
     Active Substance: CANAKINUMAB
     Dosage: UNK
     Route: 058
     Dates: start: 20170609
  4. ILARIS [Suspect]
     Active Substance: CANAKINUMAB
     Dosage: UNK
     Route: 058
     Dates: start: 2017
  5. ILARIS [Suspect]
     Active Substance: CANAKINUMAB
     Dosage: 60 MG, EVERY 4 WEEKS
     Route: 058
  6. ILARIS [Suspect]
     Active Substance: CANAKINUMAB
     Dosage: 45 MG, EVERY 4 WEEKS
     Route: 058
  7. ILARIS [Suspect]
     Active Substance: CANAKINUMAB
     Dosage: 60 MG, EVERY 4 WEEKS
     Route: 058
     Dates: start: 20180418
  8. ILARIS [Suspect]
     Active Substance: CANAKINUMAB
     Dosage: 60 MG, EVERY 4 WEEKS
     Route: 058
     Dates: start: 201906
  9. ILARIS [Suspect]
     Active Substance: CANAKINUMAB
     Dosage: 60, EVERY 4 WEEKS
     Route: 058
  10. METHYLPHENIDATE [Concomitant]
     Active Substance: METHYLPHENIDATE
     Indication: Product used for unknown indication
     Dosage: UNK, QD
     Route: 065

REACTIONS (20)
  - Pneumonia [Unknown]
  - Diarrhoea [Unknown]
  - Blister [Unknown]
  - Illness [Unknown]
  - Urticaria [Unknown]
  - Malaise [Unknown]
  - COVID-19 [Unknown]
  - Influenza [Unknown]
  - Nasopharyngitis [Unknown]
  - Rhinorrhoea [Unknown]
  - Gastroenteritis [Unknown]
  - Attention deficit hyperactivity disorder [Unknown]
  - Condition aggravated [Unknown]
  - Arthralgia [Unknown]
  - Rash [Unknown]
  - Infection [Unknown]
  - Product dose omission issue [Unknown]
  - Product use issue [Unknown]
  - Inappropriate schedule of product administration [Unknown]
  - Therapeutic response decreased [Unknown]

NARRATIVE: CASE EVENT DATE: 20170516
